FAERS Safety Report 25729426 (Version 2)
Quarter: 2025Q4

REPORT INFORMATION
  Report Type: Spontaneous
  Country: US (occurrence: US)
  Receive Date: 20250827
  Receipt Date: 20251110
  Transmission Date: 20260118
  Serious: Yes (Hospitalization, Disabling, Other)
  Sender: REGENERON
  Company Number: US-REGENERON PHARMACEUTICALS, INC.-2025-134428

PATIENT
  Sex: Female

DRUGS (3)
  1. EYLEA [Suspect]
     Active Substance: AFLIBERCEPT
     Indication: Neovascular age-related macular degeneration
     Dosage: 2 MG, EVERY SIX WEEKS INTO RIGHT EYE (FORMULATION: PFS GERRESHEIMER)
     Dates: start: 20200803
  2. EYLEA [Suspect]
     Active Substance: AFLIBERCEPT
     Dosage: 2 MG, EVERY 4-6 WEEKS INTO RIGHT EYE (OD), FORMULATION: PFS GERRESHEIMER)
     Dates: start: 20250813, end: 20250813
  3. ENBREL [Concomitant]
     Active Substance: ETANERCEPT
     Indication: Rheumatoid arthritis
     Dosage: UNK

REACTIONS (4)
  - Intracranial aneurysm [Unknown]
  - Cellulitis orbital [Recovering/Resolving]
  - Blindness unilateral [Unknown]
  - Panophthalmitis [Recovering/Resolving]

NARRATIVE: CASE EVENT DATE: 20250814
